FAERS Safety Report 15607767 (Version 1)
Quarter: 2018Q4

REPORT INFORMATION
  Report Type: Spontaneous
  Country: AR (occurrence: AR)
  Receive Date: 20181112
  Receipt Date: 20181112
  Transmission Date: 20190205
  Serious: Yes (Other)
  Sender: FDA-Public Use
  Company Number: AR-PFIZER INC-2018458462

PATIENT
  Age: 59 Year
  Sex: Female

DRUGS (2)
  1. IBRANCE [Suspect]
     Active Substance: PALBOCICLIB
     Indication: BREAST CANCER METASTATIC
     Dosage: 125 MG, CYCLIC (DAILY, 3X1 SCHEME)
     Dates: start: 20180215
  2. PREGABALIN. [Concomitant]
     Active Substance: PREGABALIN

REACTIONS (6)
  - Diabetes mellitus [Unknown]
  - Vomiting [Unknown]
  - Skin ulcer [Unknown]
  - Neoplasm progression [Unknown]
  - Blood pressure increased [Unknown]
  - Malaise [Unknown]

NARRATIVE: CASE EVENT DATE: 201810
